FAERS Safety Report 8243090-0 (Version None)
Quarter: 2012Q1

REPORT INFORMATION
  Report Type: 
  Country: None (occurrence: None)
  Receive Date: 20120329
  Receipt Date: 20120325
  Transmission Date: 20120608
  Serious: Yes (Other)
  Sender: FDA-Public Use
  Company Number: US-BAYER-2012-029609

PATIENT
  Age: 72 Year
  Sex: Female
  Weight: 99.773 kg

DRUGS (2)
  1. OXYCODONE HCL [Concomitant]
  2. ALEVE (CAPLET) [Suspect]
     Indication: PAIN
     Dosage: BOTTLE COUNT 200S
     Route: 048
     Dates: start: 20120224

REACTIONS (2)
  - DYSPHAGIA [None]
  - DIAPHRAGMATIC DISORDER [None]
